FAERS Safety Report 4696975-6 (Version None)
Quarter: 2005Q2

REPORT INFORMATION
  Report Type: 
  Country: None (occurrence: None)
  Receive Date: 20050622
  Receipt Date: 20050525
  Transmission Date: 20051028
  Serious: Yes (Hospitalization)
  Sender: FDA-Public Use
  Company Number: PHRM2005FR01656

PATIENT
  Age: 44 Year
  Sex: Male

DRUGS (1)
  1. LESCOL [Suspect]
     Indication: HYPERCHOLESTEROLAEMIA
     Dosage: 80 MG, QD
     Route: 048
     Dates: start: 20030601, end: 20050501

REACTIONS (3)
  - MYRINGOPLASTY [None]
  - TENDON RUPTURE [None]
  - TENDON SHEATH INCISION [None]
